FAERS Safety Report 12627894 (Version 1)
Quarter: 2016Q3

REPORT INFORMATION
  Report Type: Spontaneous
  Country: GB (occurrence: GB)
  Receive Date: 20160807
  Receipt Date: 20160807
  Transmission Date: 20161109
  Serious: Yes (Other)
  Sender: FDA-Public Use
  Company Number: GB-DEXPHARM-20161699

PATIENT
  Age: 54 Year
  Sex: Male
  Weight: 106 kg

DRUGS (4)
  1. CLENIL MODULITE [Concomitant]
     Active Substance: BECLOMETHASONE DIPROPIONATE
     Dosage: DAILY DOSE: 4 DF DOSAGE FORM EVERY DAYS
     Route: 055
     Dates: start: 20160624
  2. VOLUMATIC [Concomitant]
     Dosage: USE AS DIRECTED
     Dates: start: 20160722
  3. SALBUTAMOL [Concomitant]
     Active Substance: ALBUTEROL
     Indication: DYSPNOEA
     Dosage: INHALE ONE OR TWO DOSES
     Route: 055
     Dates: start: 20160620
  4. OMEPRAZOLE. [Suspect]
     Active Substance: OMEPRAZOLE
     Dates: start: 20160722

REACTIONS (1)
  - Bronchospasm [Recovered/Resolved]

NARRATIVE: CASE EVENT DATE: 20160722
